FAERS Safety Report 25764365 (Version 1)
Quarter: 2025Q3

REPORT INFORMATION
  Report Type: Spontaneous
  Country: US (occurrence: US)
  Receive Date: 20250905
  Receipt Date: 20250905
  Transmission Date: 20251020
  Serious: No
  Sender: DOMPE FARMACEUTICI
  Company Number: US-FARMAPROD-202502-0344

PATIENT
  Age: 75 Year
  Sex: Male

DRUGS (16)
  1. OXERVATE [Suspect]
     Active Substance: CENEGERMIN-BKBJ
     Indication: Neurotrophic keratopathy
     Route: 047
     Dates: start: 20250129
  2. RELISTOR [Concomitant]
     Active Substance: METHYLNALTREXONE BROMIDE
  3. HUMALOG [Concomitant]
     Active Substance: INSULIN LISPRO
  4. CLONIDINE [Concomitant]
     Active Substance: CLONIDINE
  5. OXYCODONE HYDROCHLORIDE [Concomitant]
     Active Substance: OXYCODONE HYDROCHLORIDE
  6. ISOSORBIDE DINITRATE [Concomitant]
     Active Substance: ISOSORBIDE DINITRATE
  7. METOPROLOL SUCCINATE [Concomitant]
     Active Substance: METOPROLOL SUCCINATE
  8. ASPIRIN [Concomitant]
     Active Substance: ASPIRIN
  9. XANAX [Concomitant]
     Active Substance: ALPRAZOLAM
  10. TYLENOL [Concomitant]
     Active Substance: ACETAMINOPHEN
  11. FAMOTIDINE [Concomitant]
     Active Substance: FAMOTIDINE
  12. DICYCLOMINE HYDROCHLORIDE [Concomitant]
     Active Substance: DICYCLOMINE HYDROCHLORIDE
  13. METHOCARBAMOL [Concomitant]
     Active Substance: METHOCARBAMOL
  14. OPCON-A [Concomitant]
     Active Substance: NAPHAZOLINE HYDROCHLORIDE\PHENIRAMINE MALEATE
  15. IVIZIA [Concomitant]
     Active Substance: POVIDONE
  16. UNSPECIFIED INGREDIENT [Concomitant]
     Active Substance: UNSPECIFIED INGREDIENT

REACTIONS (3)
  - Vision blurred [Not Recovered/Not Resolved]
  - Ocular discomfort [Not Recovered/Not Resolved]
  - Eye pain [Not Recovered/Not Resolved]

NARRATIVE: CASE EVENT DATE: 20250131
